FAERS Safety Report 26166417 (Version 1)
Quarter: 2025Q4

REPORT INFORMATION
  Report Type: Spontaneous
  Country: EU (occurrence: EU)
  Receive Date: 20251217
  Receipt Date: 20251217
  Transmission Date: 20260118
  Serious: Yes (Other)
  Sender: BIOGEN
  Company Number: None

PATIENT
  Age: 38 Year
  Sex: Female

DRUGS (6)
  1. PLEGRIDY [Suspect]
     Active Substance: PEGINTERFERON BETA-1A
     Indication: Multiple sclerosis
     Dates: start: 202407, end: 202504
  2. PLEGRIDY [Suspect]
     Active Substance: PEGINTERFERON BETA-1A
  3. PLEGRIDY [Suspect]
     Active Substance: PEGINTERFERON BETA-1A
  4. PLEGRIDY [Suspect]
     Active Substance: PEGINTERFERON BETA-1A
  5. PLEGRIDY [Suspect]
     Active Substance: PEGINTERFERON BETA-1A
  6. PLEGRIDY [Suspect]
     Active Substance: PEGINTERFERON BETA-1A

REACTIONS (2)
  - Leukopenia [Recovered/Resolved]
  - Thrombocytopenia [Recovered/Resolved]

NARRATIVE: CASE EVENT DATE: 20240718
